FAERS Safety Report 9170312 (Version 1)
Quarter: 2013Q1

REPORT INFORMATION
  Report Type: Spontaneous
  Country: US (occurrence: US)
  Receive Date: 20130319
  Receipt Date: 20130319
  Transmission Date: 20140127
  Serious: No
  Sender: FDA-Public Use
  Company Number: US-ROXANE LABORATORIES, INC.-2013-RO-00391RO

PATIENT
  Sex: Male

DRUGS (1)
  1. ZALEPLON [Suspect]
     Indication: SLEEP DISORDER
     Dosage: 10 MG
     Route: 048
     Dates: start: 20130109, end: 20130125

REACTIONS (1)
  - Eye pain [Not Recovered/Not Resolved]
